FAERS Safety Report 17481495 (Version 2)
Quarter: 2022Q1

REPORT INFORMATION
  Report Type: Spontaneous
  Country: US (occurrence: US)
  Receive Date: 20200302
  Receipt Date: 20220222
  Transmission Date: 20220423
  Serious: No
  Sender: FDA-Public Use
  Company Number: US-ALLERGAN-1915721US

PATIENT
  Sex: Female

DRUGS (4)
  1. OZURDEX [Suspect]
     Active Substance: DEXAMETHASONE
     Indication: Diabetic retinopathy
     Dosage: 0.7 MG, SINGLE
     Route: 031
     Dates: start: 20181214, end: 20181214
  2. LANTUS [Concomitant]
     Active Substance: INSULIN GLARGINE
     Indication: Diabetes mellitus
     Dosage: UNK
  3. UNSPECIFIED INGREDIENT [Concomitant]
     Active Substance: UNSPECIFIED INGREDIENT
     Dosage: UNK
  4. SELENIUM [Concomitant]
     Active Substance: SELENIUM
     Dosage: 200 ?G
     Route: 048

REACTIONS (2)
  - Off label use [Unknown]
  - Eyelid ptosis [Unknown]
